FAERS Safety Report 8605438-4 (Version None)
Quarter: 2012Q3

REPORT INFORMATION
  Report Type: 
  Country: None (occurrence: None)
  Receive Date: 20120820
  Receipt Date: 20120813
  Transmission Date: 20120928
  Serious: Yes (Death, Hospitalization, Other)
  Sender: FDA-Public Use
  Company Number: US-CELGENEUS-163-21880-12051556

PATIENT
  Age: 33 Year
  Sex: Male
  Weight: 123 kg

DRUGS (2)
  1. REVLIMID [Suspect]
     Dosage: 5 MILLIGRAM
     Route: 048
     Dates: start: 20120501, end: 20120506
  2. CASPOFUNGIN ACETATE [Concomitant]
     Indication: PROPHYLAXIS
     Route: 065

REACTIONS (39)
  - GRAFT VERSUS HOST DISEASE [None]
  - HYPOTENSION [None]
  - DIARRHOEA [None]
  - GASTRITIS [None]
  - NAUSEA [None]
  - WHITE BLOOD CELL COUNT DECREASED [None]
  - DIZZINESS [None]
  - HYPOALBUMINAEMIA [None]
  - BLOOD BILIRUBIN INCREASED [None]
  - HYPOPHOSPHATAEMIA [None]
  - PLATELET COUNT DECREASED [None]
  - SKIN INFECTION [None]
  - FACIAL PAIN [None]
  - SMALL INTESTINAL OBSTRUCTION [None]
  - EYE PAIN [None]
  - ATRIAL FIBRILLATION [None]
  - HYPOCALCAEMIA [None]
  - HEADACHE [None]
  - RASH MACULO-PAPULAR [None]
  - HYPERGLYCAEMIA [None]
  - ALANINE AMINOTRANSFERASE INCREASED [None]
  - STOMATITIS [None]
  - BLOOD CREATININE INCREASED [None]
  - OESOPHAGITIS [None]
  - GASTROOESOPHAGEAL REFLUX DISEASE [None]
  - HYPONATRAEMIA [None]
  - VOMITING [None]
  - RENAL FAILURE ACUTE [None]
  - LARGE INTESTINAL HAEMORRHAGE [None]
  - ILEUS [None]
  - SYNCOPE [None]
  - SINUSITIS [None]
  - NEUTROPHIL COUNT DECREASED [None]
  - ASPARTATE AMINOTRANSFERASE INCREASED [None]
  - WEIGHT DECREASED [None]
  - PAIN [None]
  - ABDOMINAL PAIN [None]
  - SINUS TACHYCARDIA [None]
  - SOMNOLENCE [None]
